FAERS Safety Report 5379301-9 (Version None)
Quarter: 2007Q3

REPORT INFORMATION
  Report Type: 
  Country: None (occurrence: None)
  Receive Date: 20070705
  Receipt Date: 20070625
  Transmission Date: 20080115
  Serious: Yes (Other)
  Sender: FDA-Public Use
  Company Number: GB-PFIZER INC-2007052517

PATIENT
  Age: 72 Year
  Sex: Female

DRUGS (1)
  1. DALACIN [Suspect]
     Indication: STAPHYLOCOCCAL INFECTION
     Route: 048

REACTIONS (3)
  - ANISOCYTOSIS [None]
  - HAEMOLYSIS [None]
  - POLYCHROMASIA [None]
